FAERS Safety Report 9742527 (Version 2)
Quarter: 2014Q1

REPORT INFORMATION
  Report Type: Report from Study
  Country: JP (occurrence: JP)
  Receive Date: 20131210
  Receipt Date: 20140122
  Transmission Date: 20141002
  Serious: Yes (Death, Life-Threatening, Other)
  Sender: FDA-Public Use
  Company Number: JP-OTSUKA-JP-2013-15769

PATIENT
  Age: 66 Year
  Sex: Male
  Weight: 85.9 kg

DRUGS (12)
  1. SAMSCA [Suspect]
     Indication: FLUID RETENTION
     Dosage: 7.5 MG MILLIGRAM(S), QAM
     Route: 048
     Dates: start: 20130809, end: 20130822
  2. SAMSCA [Suspect]
     Dosage: 15 MG MILLIGRAM(S), QAM
     Route: 048
     Dates: start: 20130823, end: 20131109
  3. LASIX [Concomitant]
     Indication: CARDIAC FAILURE
     Dosage: 80 MG MILLIGRAM(S), DAILY DOSE
     Route: 048
     Dates: end: 20130820
  4. MONILAC [Concomitant]
     Indication: HEPATIC ENCEPHALOPATHY
     Dosage: 60 ML MILLILITRE(S), DAILY DOSE
     Route: 048
     Dates: end: 20131022
  5. PURSENNID [Concomitant]
     Indication: CONSTIPATION
     Dosage: 48 MG MILLIGRAM(S), DAILY DOSE
     Route: 048
     Dates: end: 20131022
  6. BAYASPIRIN [Concomitant]
     Indication: MYOCARDIAL ISCHAEMIA
     Dosage: 100 MG MILLIGRAM(S), DAILY DOSE
     Route: 048
     Dates: end: 20131107
  7. ALDACTONE A [Concomitant]
     Indication: CARDIAC FAILURE
     Dosage: 25 MG MILLIGRAM(S), DAILY DOSE
     Route: 048
     Dates: end: 20131109
  8. WARFARIN K [Concomitant]
     Indication: ATRIAL FIBRILLATION
     Dosage: 0.5 MG MILLIGRAM(S), DAILY DOSE
     Route: 048
     Dates: end: 20131109
  9. TAKEPRON [Concomitant]
     Indication: GASTRIC ULCER HAEMORRHAGE
     Dosage: 15 MG MILLIGRAM(S), DAILY DOSE
     Route: 048
     Dates: end: 20131109
  10. DOBUTREX [Concomitant]
     Indication: CARDIAC FAILURE
     Dosage: 7.2 UG/KG/MIN, DAILY DOSE
     Route: 041
     Dates: start: 20130815, end: 20131109
  11. LASIX [Concomitant]
     Indication: CARDIAC FAILURE
     Dosage: 120 MG MILLIGRAM(S), DAILY DOSE
     Route: 042
     Dates: start: 20130821, end: 20131109
  12. PIMOBENDAN [Concomitant]
     Indication: CARDIAC FAILURE
     Dosage: 5 MG MILLIGRAM(S), DAILY DOSE
     Route: 048
     Dates: start: 20131011, end: 20131109

REACTIONS (5)
  - Ventricular tachycardia [Fatal]
  - Cardiac failure [Fatal]
  - Haemoglobin decreased [Unknown]
  - Blood sodium decreased [Unknown]
  - Blood creatinine increased [Unknown]
